FAERS Safety Report 4948472-8 (Version None)
Quarter: 2006Q1

REPORT INFORMATION
  Report Type: 
  Country: None (occurrence: None)
  Receive Date: 20060313
  Receipt Date: 20060210
  Transmission Date: 20060701
  Serious: Yes (Other)
  Sender: FDA-Public Use
  Company Number: 2006BH002971

PATIENT
  Sex: Female

DRUGS (2)
  1. VINORELBINE TARTRATE [Suspect]
     Indication: BREAST CANCER METASTATIC
     Dosage: 35 MG/M**2; IV
     Route: 042
  2. PEGYLATED LIPOSOMAL DOXORUBICIN (NO PREF. NAME) [Suspect]
     Indication: BREAST CANCER METASTATIC

REACTIONS (1)
  - SKIN TOXICITY [None]
